FAERS Safety Report 24005639 (Version 1)
Quarter: 2024Q2

REPORT INFORMATION
  Report Type: Spontaneous
  Country: US (occurrence: US)
  Receive Date: 20240624
  Receipt Date: 20240624
  Transmission Date: 20240715
  Serious: No
  Sender: FDA-Public Use
  Company Number: US-PFIZER INC-202400197672

PATIENT
  Age: 43 Year
  Sex: Female

DRUGS (2)
  1. METHOTREXATE SODIUM [Interacting]
     Active Substance: METHOTREXATE SODIUM
     Dosage: UNK
  2. ASPIRIN [Interacting]
     Active Substance: ASPIRIN
     Dosage: UNK

REACTIONS (2)
  - Drug interaction [Unknown]
  - Toxicity to various agents [Unknown]
